FAERS Safety Report 16097767 (Version 1)
Quarter: 2019Q1

REPORT INFORMATION
  Report Type: Spontaneous
  Country: US (occurrence: US)
  Receive Date: 20190320
  Receipt Date: 20190320
  Transmission Date: 20190418
  Serious: Yes (Other)
  Sender: FDA-Public Use
  Company Number: US-ASTRAZENECA-2019SE41918

PATIENT
  Sex: Male

DRUGS (1)
  1. SYMBICORT [Suspect]
     Active Substance: BUDESONIDE\FORMOTEROL FUMARATE DIHYDRATE
     Indication: CHRONIC OBSTRUCTIVE PULMONARY DISEASE
     Dosage: 160/4.5 MCG, TWO PUFFS TWICE DAILY
     Route: 055
     Dates: start: 201811

REACTIONS (16)
  - Swelling [Unknown]
  - Lung infection [Unknown]
  - Chest discomfort [Unknown]
  - Headache [Unknown]
  - Hypoacusis [Unknown]
  - Pneumothorax [Unknown]
  - Road traffic accident [Unknown]
  - Cough [Unknown]
  - Drug ineffective [Unknown]
  - Visual impairment [Unknown]
  - Lymphadenopathy [Unknown]
  - Lung disorder [Unknown]
  - Ear swelling [Unknown]
  - Abdominal discomfort [Unknown]
  - Fungal infection [Unknown]
  - Faeces discoloured [Unknown]
